FAERS Safety Report 8985415 (Version 1)
Quarter: 2012Q4

REPORT INFORMATION
  Report Type: 
  Country: JP (occurrence: JP)
  Receive Date: 20121226
  Receipt Date: 20121226
  Transmission Date: 20130627
  Serious: Yes (Hospitalization, Other)
  Sender: FDA-Public Use
  Company Number: JP-JNJFOC-20120407192

PATIENT
  Age: 60 Year
  Sex: Male

DRUGS (3)
  1. DUROTEP MT [Suspect]
     Indication: PAIN
     Route: 062
  2. DUROTEP MT [Suspect]
     Indication: PAIN
     Route: 062
     Dates: start: 20111015, end: 20120116
  3. CILNIDIPINE [Interacting]
     Indication: HYPERTENSION
     Route: 048

REACTIONS (3)
  - Respiratory depression [Recovered/Resolved]
  - Drug interaction [Unknown]
  - Wrong technique in drug usage process [Unknown]
